FAERS Safety Report 5247736-0 (Version None)
Quarter: 2007Q1

REPORT INFORMATION
  Report Type: 
  Country: None (occurrence: None)
  Receive Date: 20070227
  Receipt Date: 20070215
  Transmission Date: 20070707
  Serious: Yes (Other)
  Sender: FDA-Public Use
  Company Number: PHBS2007VE02941

PATIENT
  Age: 53 Year
  Sex: Female

DRUGS (3)
  1. ZELMAC [Suspect]
     Indication: IRRITABLE BOWEL SYNDROME
     Dosage: 6 MG, BID
     Route: 048
     Dates: start: 20061128
  2. DIOVENOR [Concomitant]
     Indication: HAEMORRHOIDS
     Dosage: UNK, QD
     Route: 048
     Dates: start: 20061128, end: 20070202
  3. LACTULOSE [Concomitant]
     Indication: CONSTIPATION
     Dosage: UNK, QD
     Route: 048
     Dates: start: 20061128, end: 20070202

REACTIONS (1)
  - PARAESTHESIA [None]
